FAERS Safety Report 25917530 (Version 1)
Quarter: 2025Q4

REPORT INFORMATION
  Report Type: Spontaneous
  Country: EU (occurrence: EU)
  Receive Date: 20251014
  Receipt Date: 20251014
  Transmission Date: 20260117
  Serious: Yes (Other)
  Sender: AUROBINDO
  Company Number: EU-AFSSAPS-RN2025000945

PATIENT
  Age: 24 Year
  Sex: Male
  Weight: 90 kg

DRUGS (3)
  1. FLUOXETINE [Suspect]
     Active Substance: FLUOXETINE HYDROCHLORIDE
     Indication: Duplicate therapy error
     Dosage: 2 GEL DE 20 MG LE MATIN ET 2 GEL DE 20 MG LE SOIR
     Route: 048
     Dates: start: 20250907, end: 20250907
  2. MODAFINIL [Suspect]
     Active Substance: MODAFINIL
     Indication: Duplicate therapy error
     Dosage: 2 CP DE 100 MG LE MATIN ET 2 CP DE 100 MG LE SOIR
     Route: 048
     Dates: start: 20250907, end: 20250907
  3. ZYBAN [Suspect]
     Active Substance: BUPROPION HYDROCHLORIDE
     Indication: Duplicate therapy error
     Dosage: 2 CP LE MATIN ET 2 CP LE SOIR
     Route: 048
     Dates: start: 20250907, end: 20250907

REACTIONS (5)
  - Medication error [Recovered/Resolved]
  - Dysarthria [Recovered/Resolved]
  - Hallucination [Recovered/Resolved]
  - Nausea [Recovered/Resolved]
  - Tremor [Recovered/Resolved]

NARRATIVE: CASE EVENT DATE: 20250907
